FAERS Safety Report 26068172 (Version 2)
Quarter: 2025Q4

REPORT INFORMATION
  Report Type: Report from Study
  Country: US (occurrence: US)
  Receive Date: 20251120
  Receipt Date: 20251203
  Transmission Date: 20260118
  Serious: Yes (Other)
  Sender: ALEXION PHARMACEUTICALS
  Company Number: US-ASTRAZENECA-202506USA022712US

PATIENT
  Age: 8 Year
  Sex: Male

DRUGS (1)
  1. STRENSIQ [Suspect]
     Active Substance: ASFOTASE ALFA
     Indication: Phosphorus metabolism disorder
     Dosage: 1 MILLIGRAM/KILOGRAM, SIX TIMES/WEEK
     Route: 065

REACTIONS (4)
  - Growth hormone deficiency [Unknown]
  - Growth retardation [Unknown]
  - Bone development abnormal [Unknown]
  - Urine calcium/creatinine ratio increased [Unknown]

NARRATIVE: CASE EVENT DATE: 20250509
